FAERS Safety Report 8052291 (Version 3)
Quarter: 2012Q4

REPORT INFORMATION
  Report Type: 
  Country: MX (occurrence: MX)
  Receive Date: 20110725
  Receipt Date: 20120905
  Transmission Date: 20130627
  Serious: Yes (Hospitalization)
  Sender: FDA-Public Use
  Company Number: PHHY2011MX65464

PATIENT
  Age: 81 Year
  Sex: Female

DRUGS (4)
  1. EXELON PATCH [Suspect]
     Indication: DEMENTIA ALZHEIMER^S TYPE
     Dosage: 1 patch (5 cm2/4.6 mg) per day
     Route: 062
     Dates: start: 201007
  2. PRISTIQ [Concomitant]
     Dosage: 1 DF, QD
     Route: 048
     Dates: start: 201106
  3. LOGIMAX [Concomitant]
     Indication: HYPERTENSION
     Dosage: Once a day
  4. LEVOTHYROXINE [Concomitant]
     Dosage: 100 ug, UNK

REACTIONS (4)
  - Upper limb fracture [Recovered/Resolved]
  - Wrist fracture [Recovered/Resolved]
  - Fall [Recovered/Resolved]
  - Upper limb fracture [None]
